FAERS Safety Report 8129005-4 (Version None)
Quarter: 2012Q1

REPORT INFORMATION
  Report Type: 
  Country: None (occurrence: None)
  Receive Date: 20120210
  Receipt Date: 20120131
  Transmission Date: 20120608
  Serious: Yes (Other)
  Sender: FDA-Public Use
  Company Number: RO-JNJFOC-20120200806

PATIENT

DRUGS (3)
  1. INFLIXIMAB, RECOMBINANT [Suspect]
     Indication: CROHN'S DISEASE
     Route: 042
  2. LORATADINE [Concomitant]
     Indication: PREMEDICATION
     Route: 065
  3. AZATHIOPRINE [Concomitant]
     Route: 065

REACTIONS (5)
  - HYPOTENSION [None]
  - INFUSION RELATED REACTION [None]
  - TACHYCARDIA [None]
  - PYREXIA [None]
  - DYSPNOEA [None]
